FAERS Safety Report 5399973-2 (Version None)
Quarter: 2007Q3

REPORT INFORMATION
  Report Type: 
  Country: None (occurrence: None)
  Receive Date: 20070730
  Receipt Date: 20070726
  Transmission Date: 20080115
  Serious: Yes (Disabling)
  Sender: FDA-Public Use
  Company Number: JP-BRISTOL-MYERS SQUIBB COMPANY-13843784

PATIENT
  Age: 75 Year
  Sex: Male

DRUGS (4)
  1. TAXOL [Suspect]
     Indication: LUNG NEOPLASM MALIGNANT
     Route: 041
     Dates: start: 20061109, end: 20061212
  2. PARAPLATIN [Suspect]
     Route: 041
     Dates: start: 20061109, end: 20061212
  3. DECADRON [Suspect]
     Indication: NAUSEA
     Route: 041
     Dates: start: 20061109, end: 20061212
  4. HORMONE THERAPY [Concomitant]

REACTIONS (1)
  - BLINDNESS [None]
